FAERS Safety Report 9850666 (Version 1)
Quarter: 2013Q4

REPORT INFORMATION
  Report Type: Spontaneous
  Country: US (occurrence: None)
  Receive Date: 20131226
  Receipt Date: 20131226
  Transmission Date: 20140711
  Serious: Yes (Hospitalization)
  Sender: FDA-Public Use
  Company Number: PHEH2012US012623

PATIENT
  Age: 51 Year
  Sex: Male
  Weight: 112.9 kg

DRUGS (4)
  1. AFINITOR [Suspect]
     Indication: PANCREATIC NEUROENDOCRINE TUMOUR
     Route: 048
     Dates: start: 201102, end: 201105
  2. FLUOROURACIL [Concomitant]
  3. ZOMETA [Concomitant]
  4. SANDOSTATIN LAR [Concomitant]

REACTIONS (1)
  - Mucosal inflammation [None]
